FAERS Safety Report 9114528 (Version 1)
Quarter: 2013Q1

REPORT INFORMATION
  Report Type: Spontaneous
  Country: US (occurrence: US)
  Receive Date: 20130128
  Receipt Date: 20130128
  Transmission Date: 20140127
  Serious: Yes (Other)
  Sender: FDA-Public Use
  Company Number: US-PFIZER INC-2013033959

PATIENT
  Sex: Male
  Weight: 85.26 kg

DRUGS (2)
  1. TIKOSYN [Suspect]
     Dosage: 250 UG, 2X/DAY
  2. SIMVASTATIN [Concomitant]
     Dosage: HALF OF 20 UG, 1X/DAY

REACTIONS (1)
  - Hypoacusis [Not Recovered/Not Resolved]
